FAERS Safety Report 10245123 (Version 1)
Quarter: 2014Q2

REPORT INFORMATION
  Report Type: Spontaneous
  Country: US (occurrence: US)
  Receive Date: 20140618
  Receipt Date: 20140618
  Transmission Date: 20141212
  Serious: Yes (Disabling, Other)
  Sender: FDA-Public Use
  Company Number: US-PFIZER INC-2014167020

PATIENT
  Age: 52 Year
  Sex: Female
  Weight: 133.8 kg

DRUGS (1)
  1. CELEBREX [Suspect]
     Indication: ARTHRITIS
     Dosage: 200 MG, DAILY

REACTIONS (2)
  - Systemic lupus erythematosus [Unknown]
  - Arthropathy [Unknown]
